FAERS Safety Report 26155602 (Version 1)
Quarter: 2025Q4

REPORT INFORMATION
  Report Type: Spontaneous
  Country: IN (occurrence: IN)
  Receive Date: 20251215
  Receipt Date: 20251215
  Transmission Date: 20260118
  Serious: No
  Sender: ALKEM
  Company Number: IN-ALKEM LABORATORIES LIMITED-IN-ALKEM-2025-04737

PATIENT
  Age: 21 Year
  Sex: Male
  Weight: 42 kg

DRUGS (9)
  1. TACROLIMUS [Suspect]
     Active Substance: TACROLIMUS
     Indication: Immunosuppressant drug therapy
     Dosage: 3 MG/DAY
     Route: 065
  2. TACROLIMUS [Suspect]
     Active Substance: TACROLIMUS
     Dosage: 2 MG/DAY
     Route: 065
  3. EPINEPHRINE [Concomitant]
     Active Substance: EPINEPHRINE
     Indication: Dilated cardiomyopathy
     Dosage: 0.2 MICROGRAM/KILOGRAM (PER MINUTES)
     Route: 065
  4. MILRINONE [Concomitant]
     Active Substance: MILRINONE
     Indication: Dilated cardiomyopathy
     Dosage: 0.375 MICROGRAM/KILOGRAM (PER MINUTE)
     Route: 065
  5. MILRINONE [Concomitant]
     Active Substance: MILRINONE
     Dosage: 0.75 MICROGRAM/KILOGRAM (PER MINUTE)
     Route: 065
  6. MYCOPHENOLATE MOFETIL [Concomitant]
     Active Substance: MYCOPHENOLATE MOFETIL
     Indication: Immunosuppressant drug therapy
     Dosage: 2 G/DAY
     Route: 065
  7. NITRIC OXIDE [Concomitant]
     Active Substance: NITRIC OXIDE
     Indication: Dilated cardiomyopathy
     Dosage: UNK (20 PPM)
     Route: 065
  8. PREDNISOLONE [Concomitant]
     Active Substance: PREDNISOLONE
     Indication: Immunosuppressant drug therapy
     Dosage: 40 MG/DAY
     Route: 065
  9. PREDNISOLONE [Concomitant]
     Active Substance: PREDNISOLONE
     Dosage: 5 MG/DAY (TAPERED)
     Route: 065

REACTIONS (2)
  - Peroneal nerve palsy [Recovered/Resolved]
  - Immunosuppressant drug level decreased [Unknown]
